FAERS Safety Report 14266096 (Version 1)
Quarter: 2017Q4

REPORT INFORMATION
  Report Type: Spontaneous
  Country: CN (occurrence: CN)
  Receive Date: 20171209
  Receipt Date: 20171209
  Transmission Date: 20180321
  Serious: Yes (Hospitalization, Other)
  Sender: FDA-Public Use
  Company Number: CN-BRISTOL-MYERS SQUIBB COMPANY-BMS-2017-109610

PATIENT
  Age: 63 Year
  Sex: Male

DRUGS (2)
  1. METHYLPREDNISOLONE. [Suspect]
     Active Substance: METHYLPREDNISOLONE
     Indication: PULMONARY FIBROSIS
     Route: 065
  2. NIVOLUMAB [Suspect]
     Active Substance: NIVOLUMAB
     Indication: SQUAMOUS CELL CARCINOMA OF LUNG
     Route: 065

REACTIONS (4)
  - Pulmonary fibrosis [Unknown]
  - Pneumonia klebsiella [Recovered/Resolved]
  - Malignant neoplasm progression [Recovering/Resolving]
  - Neutropenia [Recovered/Resolved]
